FAERS Safety Report 13571571 (Version 3)
Quarter: 2017Q3

REPORT INFORMATION
  Report Type: Spontaneous
  Country: US (occurrence: US)
  Receive Date: 20170523
  Receipt Date: 20170705
  Transmission Date: 20171127
  Serious: Yes (Other)
  Sender: FDA-Public Use
  Company Number: US-PFIZER INC-2017223291

PATIENT
  Sex: Female

DRUGS (1)
  1. XELJANZ XR [Suspect]
     Active Substance: TOFACITINIB CITRATE
     Dosage: 11 MG, 1X/DAY

REACTIONS (36)
  - Arthralgia [Unknown]
  - Effusion [Unknown]
  - Red blood cell nucleated morphology present [Unknown]
  - LE cells present [Unknown]
  - Hypoacusis [Unknown]
  - Dry eye [Unknown]
  - Erythema [Unknown]
  - Rheumatoid nodule [Unknown]
  - Blood 25-hydroxycholecalciferol decreased [Unknown]
  - Synovitis [Unknown]
  - Pain [Unknown]
  - Musculoskeletal stiffness [Unknown]
  - Nasal congestion [Unknown]
  - Rhinorrhoea [Unknown]
  - Urinary sediment present [Unknown]
  - Condition aggravated [Unknown]
  - Emotional distress [Unknown]
  - Sinus pain [Unknown]
  - Musculoskeletal pain [Unknown]
  - Depression [Unknown]
  - Fatigue [Unknown]
  - Bursitis [Unknown]
  - Neutrophil count increased [Unknown]
  - Myalgia [Unknown]
  - Sleep disorder [Unknown]
  - Overweight [Unknown]
  - Rhinitis [Unknown]
  - C-reactive protein increased [Unknown]
  - Muscle spasms [Unknown]
  - Tenderness [Unknown]
  - Hand deformity [Unknown]
  - Joint abscess [Unknown]
  - Tendonitis [Unknown]
  - Middle ear effusion [Unknown]
  - White blood cell disorder [Unknown]
  - Red blood cell sedimentation rate increased [Unknown]
